FAERS Safety Report 4398806-0 (Version None)
Quarter: 2004Q3

REPORT INFORMATION
  Report Type: 
  Country: None (occurrence: None)
  Receive Date: 20040712
  Receipt Date: 20040622
  Transmission Date: 20050211
  Serious: Yes (Other)
  Sender: FDA-Public Use
  Company Number: USA040670866

PATIENT
  Age: 92 Year
  Sex: Female

DRUGS (2)
  1. FORTEO [Suspect]
     Indication: OSTEOPOROSIS
     Dates: start: 20030101
  2. CALCIUM [Concomitant]

REACTIONS (10)
  - BACK PAIN [None]
  - EYE DISORDER [None]
  - FATIGUE [None]
  - MYOCARDIAL INFARCTION [None]
  - OPTIC ISCHAEMIC NEUROPATHY [None]
  - PAIN [None]
  - PHARMACEUTICAL PRODUCT COMPLAINT [None]
  - SLEEP DISORDER [None]
  - SPINAL COMPRESSION FRACTURE [None]
  - VISION BLURRED [None]
